FAERS Safety Report 20510782 (Version 1)
Quarter: 2022Q1

REPORT INFORMATION
  Report Type: Other
  Country: CA (occurrence: CA)
  Receive Date: 20220224
  Receipt Date: 20220224
  Transmission Date: 20220423
  Serious: Yes (Other)
  Sender: FDA-Public Use
  Company Number: CA-APOTEX-2022AP003735

PATIENT
  Age: 34 Year
  Sex: Female
  Weight: 77 kg

DRUGS (1)
  1. DOXYCYCLINE [Suspect]
     Active Substance: DOXYCYCLINE
     Indication: Sinusitis
     Dosage: 100 MILLIGRAM, BID
     Route: 048

REACTIONS (8)
  - Head discomfort [Unknown]
  - Hyperhidrosis [Unknown]
  - Nystagmus [Unknown]
  - Tremor [Unknown]
  - Visual impairment [Unknown]
  - Headache [Unknown]
  - Vision blurred [Unknown]
  - Vomiting [Unknown]
